FAERS Safety Report 8291246-3 (Version None)
Quarter: 2012Q2

REPORT INFORMATION
  Report Type: 
  Country: None (occurrence: None)
  Receive Date: 20120417
  Receipt Date: 20120410
  Transmission Date: 20120825
  Serious: Yes (Hospitalization)
  Sender: FDA-Public Use
  Company Number: US-US-EMD SERONO, INC.-7116300

PATIENT
  Sex: Female

DRUGS (2)
  1. REBIF [Suspect]
     Indication: PRODUCT USED FOR UNKNOWN INDICATION
     Route: 058
     Dates: start: 20111101, end: 20111101
  2. AMPYRA [Concomitant]
     Dates: end: 20111101

REACTIONS (4)
  - ATRIAL FIBRILLATION [None]
  - AMNESIA [None]
  - COMA [None]
  - WHITE BLOOD CELL COUNT DECREASED [None]
